FAERS Safety Report 11416170 (Version 1)
Quarter: 2015Q3

REPORT INFORMATION
  Report Type: Spontaneous
  Country: US (occurrence: US)
  Receive Date: 20150825
  Receipt Date: 20150825
  Transmission Date: 20151125
  Serious: No
  Sender: FDA-Public Use
  Company Number: US-TEVA-559852USA

PATIENT
  Age: 66 Year
  Sex: Female
  Weight: 72.56 kg

DRUGS (2)
  1. OMEPRAZOLE MAGNESIUM. [Interacting]
     Active Substance: OMEPRAZOLE MAGNESIUM
     Indication: GASTROOESOPHAGEAL REFLUX DISEASE
     Dosage: 1 TABLET DAILY
     Route: 048
     Dates: start: 201504
  2. FEXOFENADINE [Suspect]
     Active Substance: FEXOFENADINE\FEXOFENADINE HYDROCHLORIDE
     Indication: SEASONAL ALLERGY
     Dosage: EVERY OTHER DAY
     Route: 048
     Dates: start: 201504, end: 20150425

REACTIONS (6)
  - Drug interaction [Not Recovered/Not Resolved]
  - Labelled drug-drug interaction medication error [Unknown]
  - Drug administered to patient of inappropriate age [Unknown]
  - Papule [Not Recovered/Not Resolved]
  - Pruritus [Not Recovered/Not Resolved]
  - Rash [Not Recovered/Not Resolved]

NARRATIVE: CASE EVENT DATE: 201504
